FAERS Safety Report 19787301 (Version 1)
Quarter: 2021Q3

REPORT INFORMATION
  Report Type: Spontaneous
  Country: US (occurrence: US)
  Receive Date: 20210903
  Receipt Date: 20210903
  Transmission Date: 20211014
  Serious: No
  Sender: FDA-Public Use
  Company Number: US-DECIPHERA PHARMACEUTICALS LLC-2021US000518

PATIENT
  Sex: Male

DRUGS (1)
  1. QINLOCK [Suspect]
     Active Substance: RIPRETINIB
     Indication: TENSION HEADACHE
     Dosage: 100 MILLIGRAM, QD
     Route: 065
     Dates: end: 20210613

REACTIONS (2)
  - Asthenia [Unknown]
  - Product use in unapproved indication [Unknown]
